FAERS Safety Report 4348674-8 (Version None)
Quarter: 2004Q2

REPORT INFORMATION
  Report Type: 
  Country: None (occurrence: None)
  Receive Date: 20040424
  Receipt Date: 20040413
  Transmission Date: 20050107
  Serious: Yes (Life-Threatening, Hospitalization)
  Sender: FDA-Public Use
  Company Number: 200410234BNE

PATIENT
  Age: 70 Year
  Sex: Male
  Weight: 70 kg

DRUGS (11)
  1. MOXIFLOXACIN HCL [Suspect]
     Indication: LOWER RESPIRATORY TRACT INFECTION
     Dosage: 400 MG, TOTAL DAILY, ORAL
     Route: 048
     Dates: start: 20040209, end: 20040211
  2. ENOXAPARIN SODIUM [Concomitant]
  3. SENNA [Concomitant]
  4. DOCUSATE SODIUM [Concomitant]
  5. ASPIRIN [Concomitant]
  6. PERINDOPRIL [Concomitant]
  7. AMIODARONE HCL [Concomitant]
  8. METOCLOPRAMIDE [Concomitant]
  9. ACETAMINOPHEN [Concomitant]
  10. ZOPICLONE [Concomitant]
  11. SANDO K [Concomitant]

REACTIONS (1)
  - VENTRICULAR FIBRILLATION [None]
